FAERS Safety Report 11792445 (Version 2)
Quarter: 2016Q4

REPORT INFORMATION
  Report Type: Spontaneous
  Country: FR (occurrence: FR)
  Receive Date: 20151202
  Receipt Date: 20161007
  Transmission Date: 20170206
  Serious: Yes (Other)
  Sender: FDA-Public Use
  Company Number: FR-ROCHE-1670236

PATIENT
  Age: 47 Year
  Sex: Male

DRUGS (10)
  1. EVEROLIMUS [Concomitant]
     Active Substance: EVEROLIMUS
     Route: 065
  2. ZELBORAF [Suspect]
     Active Substance: VEMURAFENIB
     Indication: METASTATIC MALIGNANT MELANOMA
     Route: 065
  3. TACROLIMUS. [Concomitant]
     Active Substance: TACROLIMUS
     Route: 065
  4. TACROLIMUS. [Concomitant]
     Active Substance: TACROLIMUS
     Route: 065
  5. EVEROLIMUS [Concomitant]
     Active Substance: EVEROLIMUS
     Route: 065
  6. DABRAFENIB [Concomitant]
     Active Substance: DABRAFENIB
     Route: 065
  7. TACROLIMUS. [Concomitant]
     Active Substance: TACROLIMUS
     Route: 065
  8. TACROLIMUS. [Concomitant]
     Active Substance: TACROLIMUS
     Route: 065
  9. ZELBORAF [Suspect]
     Active Substance: VEMURAFENIB
     Route: 065
  10. EVEROLIMUS [Concomitant]
     Active Substance: EVEROLIMUS
     Route: 065

REACTIONS (1)
  - Acute kidney injury [Recovering/Resolving]
